FAERS Safety Report 9454645 (Version 1)
Quarter: 2013Q3

REPORT INFORMATION
  Report Type: Other
  Country: US (occurrence: US)
  Receive Date: 20130812
  Receipt Date: 20130812
  Transmission Date: 20140515
  Serious: Yes (Hospitalization, Other)
  Sender: FDA-Public Use
  Company Number: US-BRISTOL-MYERS SQUIBB COMPANY-19173608

PATIENT
  Age: 65 Year
  Sex: Male
  Weight: 66 kg

DRUGS (11)
  1. METFORMIN HCL [Suspect]
     Route: 048
  2. SIMVASTATIN [Interacting]
     Indication: LOW DENSITY LIPOPROTEIN
     Route: 048
  3. VORICONAZOLE [Interacting]
     Indication: PROPHYLAXIS
     Route: 048
  4. ATOVAQUONE [Concomitant]
     Indication: ANTIFUNGAL PROPHYLAXIS
     Route: 048
  5. ASPIRIN [Concomitant]
     Route: 048
  6. FOLIC ACID [Concomitant]
     Route: 048
  7. LISINOPRIL [Concomitant]
     Route: 048
  8. METOPROLOL [Concomitant]
     Route: 048
  9. TACROLIMUS [Concomitant]
     Route: 048
  10. INSULIN [Concomitant]
     Route: 058
  11. NPH INSULIN [Concomitant]
     Route: 058

REACTIONS (2)
  - Rhabdomyolysis [Unknown]
  - Drug interaction [Unknown]
